FAERS Safety Report 9233767 (Version 1)
Quarter: 2013Q2

REPORT INFORMATION
  Report Type: Spontaneous
  Country: US (occurrence: US)
  Receive Date: 20130416
  Receipt Date: 20130416
  Transmission Date: 20140414
  Serious: No
  Sender: FDA-Public Use
  Company Number: US-BANPHARM-20131047

PATIENT
  Age: 85 Year
  Sex: Male
  Weight: 95.25 kg

DRUGS (2)
  1. ALEVE LIQUID GELS 220MG [Suspect]
     Indication: ARTHRITIS
     Dosage: 2-3 DF QD
     Route: 048
     Dates: start: 20120501, end: 20120625
  2. VITAMINS [Concomitant]

REACTIONS (2)
  - Drug ineffective [Unknown]
  - Incorrect drug administration duration [Unknown]
